FAERS Safety Report 9634088 (Version 1)
Quarter: 2013Q4

REPORT INFORMATION
  Report Type: Report from Study
  Country: IT (occurrence: IT)
  Receive Date: 20131021
  Receipt Date: 20131021
  Transmission Date: 20140711
  Serious: Yes (Life-Threatening, Hospitalization)
  Sender: FDA-Public Use
  Company Number: IT-INCYTE CORPORATION-2013IN002378

PATIENT
  Age: 64 Year
  Sex: Male
  Weight: 59 kg

DRUGS (8)
  1. INC424 [Suspect]
     Indication: MYELOFIBROSIS
     Dosage: 20 MG, BID
     Route: 048
     Dates: start: 20120510, end: 20130924
  2. INC424 [Suspect]
     Dosage: 10 MG, BID
     Route: 048
     Dates: start: 20130925, end: 20131006
  3. NORVASC [Concomitant]
     Dosage: UNK
     Dates: start: 20120430
  4. ZYLORIC [Concomitant]
     Dosage: UNK
     Dates: start: 20100111
  5. MEPRAL [Concomitant]
  6. DESFERAL [Concomitant]
     Dosage: UNK
     Dates: start: 20110901
  7. LASIX [Concomitant]
     Dosage: UNK
  8. TENORMIN [Concomitant]
     Dosage: UNK
     Dates: start: 20130430

REACTIONS (1)
  - Pyrexia [Not Recovered/Not Resolved]
